FAERS Safety Report 8486601-2 (Version None)
Quarter: 2012Q3

REPORT INFORMATION
  Report Type: 
  Country: None (occurrence: None)
  Receive Date: 20120703
  Receipt Date: 20120621
  Transmission Date: 20120928
  Serious: Yes (Other)
  Sender: FDA-Public Use
  Company Number: PT-ELI_LILLY_AND_COMPANY-PT201204004703

PATIENT
  Age: 53 Year
  Sex: Male

DRUGS (3)
  1. ZYPREXA [Suspect]
     Indication: PSYCHOTIC DISORDER
     Dosage: 10 MG, BID
     Route: 048
     Dates: start: 20100101
  2. ESTAZOLAM [Concomitant]
  3. TRAZODONE HCL [Concomitant]

REACTIONS (5)
  - ARRHYTHMIA [None]
  - INTENTIONAL DRUG MISUSE [None]
  - ERECTION INCREASED [None]
  - PAINFUL ERECTION [None]
  - CONSTIPATION [None]
